FAERS Safety Report 11751683 (Version 2)
Quarter: 2015Q4

REPORT INFORMATION
  Report Type: Report from Study
  Country: US (occurrence: US)
  Receive Date: 20151118
  Receipt Date: 20151125
  Transmission Date: 20160304
  Serious: Yes (Hospitalization, Other)
  Sender: FDA-Public Use
  Company Number: US-GILEAD-2015-0182697

PATIENT
  Age: 67 Year
  Sex: Male

DRUGS (2)
  1. RANOLAZINE [Suspect]
     Active Substance: RANOLAZINE
     Indication: ANGINA PECTORIS
     Dosage: UNK
     Route: 048
     Dates: start: 20150401, end: 20151013
  2. RANOLAZINE [Suspect]
     Active Substance: RANOLAZINE
     Indication: VENTRICULAR TACHYCARDIA

REACTIONS (2)
  - Cardioversion [Unknown]
  - Off label use [Unknown]

NARRATIVE: CASE EVENT DATE: 201510
